FAERS Safety Report 4997120-X (Version None)
Quarter: 2006Q2

REPORT INFORMATION
  Report Type: 
  Country: None (occurrence: None)
  Receive Date: 20060508
  Receipt Date: 20060508
  Transmission Date: 20061013
  Serious: Yes (Life-Threatening, Hospitalization)
  Sender: FDA-Public Use
  Company Number: None

PATIENT
  Sex: Female
  Weight: 113.3993 kg

DRUGS (1)
  1. LAMICTAL [Suspect]
     Indication: BIPOLAR DISORDER
     Dosage: 75 MG    1 DAY   PO
     Route: 048

REACTIONS (5)
  - BURNING SENSATION [None]
  - HYPERSENSITIVITY [None]
  - PAIN [None]
  - SWELLING [None]
  - TOXIC EPIDERMAL NECROLYSIS [None]
